FAERS Safety Report 23911324 (Version 1)
Quarter: 2024Q2

REPORT INFORMATION
  Report Type: Spontaneous
  Country: US (occurrence: US)
  Receive Date: 20240528
  Receipt Date: 20240528
  Transmission Date: 20240716
  Serious: Yes (Death, Hospitalization, Other)
  Sender: FDA-Public Use
  Company Number: US-PFIZER INC-PV202400068883

PATIENT
  Age: 59 Year
  Sex: Female
  Weight: 92.7 kg

DRUGS (7)
  1. VORICONAZOLE [Suspect]
     Active Substance: VORICONAZOLE
     Dosage: UNK
     Dates: start: 20240415, end: 20240418
  2. BELUMOSUDIL [Suspect]
     Active Substance: BELUMOSUDIL
     Dosage: UNK
  3. JAKAFI [Suspect]
     Active Substance: RUXOLITINIB
     Indication: Chronic graft versus host disease
     Dosage: UNK
  4. POSACONAZOLE [Suspect]
     Active Substance: POSACONAZOLE
     Dosage: UNK
     Dates: end: 20240415
  5. AXATILIMAB [Concomitant]
     Active Substance: AXATILIMAB
     Dosage: UNK
     Dates: start: 20240308, end: 20240321
  6. REZUROCK [Concomitant]
     Active Substance: BELUMOSUDIL
     Dosage: UNK
  7. TACOGEN [Concomitant]
     Dosage: UNK

REACTIONS (14)
  - Death [Fatal]
  - Pneumonia fungal [Recovering/Resolving]
  - Encephalopathy [Unknown]
  - Hypoxia [Unknown]
  - Gastric ulcer [Unknown]
  - Enterococcal infection [Unknown]
  - Citrobacter infection [Unknown]
  - Gastrointestinal haemorrhage [Unknown]
  - Fall [Unknown]
  - Head injury [Unknown]
  - Mental status changes [Unknown]
  - Fungal infection [Unknown]
  - Oesophagitis [Unknown]
  - Sinusitis [Unknown]

NARRATIVE: CASE EVENT DATE: 20240405
